FAERS Safety Report 4316376-X (Version None)
Quarter: 2004Q1

REPORT INFORMATION
  Report Type: 
  Country: None (occurrence: None)
  Receive Date: 20040312
  Receipt Date: 20040312
  Transmission Date: 20041129
  Serious: Yes (Hospitalization)
  Sender: FDA-Public Use
  Company Number: None

PATIENT
  Age: 79 Year
  Sex: Male
  Weight: 78.9259 kg

DRUGS (3)
  1. TAXOTERE [Suspect]
     Indication: GASTRIC CANCER
     Dosage: 51MG, D128, IV
     Route: 042
     Dates: start: 20040203
  2. CARBOPLATIN [Suspect]
     Dosage: 127MG, D1-8, IV
     Route: 042
     Dates: start: 20040203
  3. XELODA [Suspect]
     Dosage: 2500 MG X 10D; PO
     Route: 048
     Dates: start: 20040203

REACTIONS (9)
  - ANOREXIA [None]
  - ASTHENIA [None]
  - FAILURE TO THRIVE [None]
  - GASTROINTESTINAL CANCER METASTATIC [None]
  - HAEMOGLOBIN DECREASED [None]
  - LIVER FUNCTION TEST ABNORMAL [None]
  - LIVER TENDERNESS [None]
  - MALIGNANT NEOPLASM PROGRESSION [None]
  - NAUSEA [None]
